FAERS Safety Report 25032920 (Version 3)
Quarter: 2025Q1

REPORT INFORMATION
  Report Type: Spontaneous
  Country: US (occurrence: US)
  Receive Date: 20250303
  Receipt Date: 20250320
  Transmission Date: 20250409
  Serious: Yes (Other)
  Sender: PURDUE
  Company Number: US-PURDUE PHARMA-USA-2025-0315760

PATIENT
  Age: 57 Year
  Sex: Male

DRUGS (4)
  1. OXYCODONE HYDROCHLORIDE [Suspect]
     Active Substance: OXYCODONE HYDROCHLORIDE
     Indication: Pain
     Route: 065
  2. DILAUDID [Suspect]
     Active Substance: HYDROMORPHONE HYDROCHLORIDE
     Indication: Pain
     Route: 042
  3. KETAMINE [Suspect]
     Active Substance: KETAMINE
     Indication: Pain
     Route: 042
  4. FENTANYL [Suspect]
     Active Substance: FENTANYL
     Indication: Pain
     Route: 065

REACTIONS (9)
  - Blood sodium decreased [Unknown]
  - Drug abuse [Unknown]
  - Condition aggravated [Unknown]
  - Peripheral coldness [Unknown]
  - Movement disorder [Unknown]
  - Sensory loss [Unknown]
  - Inadequate analgesia [Unknown]
  - Peripheral swelling [Unknown]
  - Product use issue [Unknown]
